FAERS Safety Report 18486408 (Version 1)
Quarter: 2020Q4

REPORT INFORMATION
  Report Type: Spontaneous
  Country: JP (occurrence: JP)
  Receive Date: 20201110
  Receipt Date: 20201110
  Transmission Date: 20210114
  Serious: Yes (Other)
  Sender: FDA-Public Use
  Company Number: JP-LUPIN PHARMACEUTICALS INC.-2020-08523

PATIENT
  Age: 83 Year
  Sex: Male

DRUGS (8)
  1. AMPICILLIN/SULBACTAM [Concomitant]
     Active Substance: AMPICILLIN SODIUM\SULBACTAM SODIUM
     Indication: COVID-19
     Dosage: UNK
     Route: 065
     Dates: start: 2020
  2. AZITHROMYCIN ANHYDROUS. [Suspect]
     Active Substance: AZITHROMYCIN ANHYDROUS
     Indication: COVID-19
     Dosage: UNK
     Route: 065
     Dates: start: 2020
  3. CEFTRIAXONE. [Suspect]
     Active Substance: CEFTRIAXONE
     Indication: COVID-19
     Dosage: UNK
     Route: 065
     Dates: start: 2020
  4. PIPERACILLIN/TAZOBACTAM [Concomitant]
     Active Substance: PIPERACILLIN SODIUM\TAZOBACTAM SODIUM
     Indication: COVID-19
     Dosage: UNK
     Route: 065
     Dates: start: 2020
  5. HYDROCORTISONE. [Concomitant]
     Active Substance: HYDROCORTISONE
     Indication: ACUTE RESPIRATORY FAILURE
     Dosage: 200 MILLIGRAM
     Route: 042
     Dates: start: 2020, end: 2020
  6. POLYMYXIN B. [Concomitant]
     Active Substance: POLYMYXIN B
     Indication: ACUTE RESPIRATORY FAILURE
     Dosage: UNK, QD, POLYMIXIN-B IMMOBILISED FIBER COLUMN-DIRECT HEMOPERFUSION FOR 3 HOURS A DAY ON HOSPITAL DAY
     Route: 065
     Dates: start: 2020, end: 2020
  7. HYDROCORTISONE. [Concomitant]
     Active Substance: HYDROCORTISONE
     Dosage: 10 MILLIGRAM PER HOUR, CONTINUOUS ADMINISTRATION
     Route: 042
     Dates: start: 2020, end: 2020
  8. KALETRA [Concomitant]
     Active Substance: LOPINAVIR\RITONAVIR
     Indication: COVID-19
     Dosage: UNK UNK, QD, 800/ 200 MG
     Route: 048
     Dates: start: 2020

REACTIONS (1)
  - Off label use [Unknown]
